FAERS Safety Report 20940260 (Version 4)
Quarter: 2022Q3

REPORT INFORMATION
  Report Type: Spontaneous
  Country: IT (occurrence: IT)
  Receive Date: 20220609
  Receipt Date: 20220927
  Transmission Date: 20221027
  Serious: Yes (Hospitalization, Other)
  Sender: FDA-Public Use
  Company Number: IT-TAKEDA-2022TEU003673

PATIENT
  Age: 16 Year
  Sex: Female

DRUGS (6)
  1. LANSOPRAZOLE [Suspect]
     Active Substance: LANSOPRAZOLE
     Indication: Gastritis
     Dosage: 30 MILLIGRAM, QD
     Route: 048
  2. LANSOPRAZOLE [Suspect]
     Active Substance: LANSOPRAZOLE
     Dosage: 15 MILLIGRAM, QD
     Route: 048
  3. LANSOPRAZOLE [Suspect]
     Active Substance: LANSOPRAZOLE
     Dosage: UNK
     Route: 048
  4. LITHIUM [Concomitant]
     Active Substance: LITHIUM
     Indication: Bipolar disorder
     Dosage: 300 MILLIGRAM, TID
  5. PERICIAZINE [Concomitant]
     Active Substance: PERICIAZINE
     Indication: Euphoric mood
     Dosage: 10 MILLIGRAM, QD
  6. PERICIAZINE [Concomitant]
     Active Substance: PERICIAZINE
     Indication: Sleep disorder

REACTIONS (12)
  - Catatonia [Recovered/Resolved]
  - Depressed mood [Recovering/Resolving]
  - Mutism [Recovering/Resolving]
  - Anhedonia [Recovering/Resolving]
  - Irritability [Recovering/Resolving]
  - Frustration tolerance decreased [Recovering/Resolving]
  - Condition aggravated [Recovering/Resolving]
  - Off label use [Recovering/Resolving]
  - Restlessness [Recovering/Resolving]
  - Apathy [Recovering/Resolving]
  - Anxiety [Recovering/Resolving]
  - Depression [Recovered/Resolved]
